FAERS Safety Report 8478029 (Version 2)
Quarter: 2012Q4

REPORT INFORMATION
  Report Type: 
  Country: GB (occurrence: GB)
  Receive Date: 20120327
  Receipt Date: 20121228
  Transmission Date: 20130627
  Serious: Yes (Death, Other)
  Sender: FDA-Public Use
  Company Number: GB-RANBAXY-2012R1-53969

PATIENT
  Age: 30 Year
  Sex: Male
  Weight: 78.64 kg

DRUGS (2)
  1. CIPROFLOXACIN [Suspect]
     Indication: URINARY TRACT INFECTION
     Dosage: 500 mg, bid
     Route: 048
     Dates: start: 20120217, end: 20120229
  2. DOXYCYCLINE [Concomitant]
     Indication: URINARY TRACT INFECTION
     Dosage: 100 mg, bid
     Route: 048
     Dates: start: 20120217, end: 20120229

REACTIONS (3)
  - Optic neuritis [Recovered/Resolved]
  - Eye pain [Recovered/Resolved]
  - Visual impairment [Recovered/Resolved]
